FAERS Safety Report 7594562-3 (Version None)
Quarter: 2011Q2

REPORT INFORMATION
  Report Type: 
  Country: None (occurrence: None)
  Receive Date: 20110628
  Receipt Date: 20110621
  Transmission Date: 20111010
  Serious: Yes (Hospitalization, Other)
  Sender: FDA-Public Use
  Company Number: CIP11000511

PATIENT
  Sex: Female
  Weight: 71.2 kg

DRUGS (2)
  1. ACTONEL [Suspect]
     Dosage: 35 MG, ORAL
     Route: 048
  2. FOSAMAX [Suspect]
     Indication: OSTEOPOROSIS
     Dosage: 70 MG ONCE WEEKLY, ORAL; 10 MG ONCE DAILY, ORAL
     Route: 048

REACTIONS (12)
  - FALL [None]
  - OSTEOARTHRITIS [None]
  - PATHOLOGICAL FRACTURE [None]
  - HAEMORRHAGIC ANAEMIA [None]
  - SPINAL OSTEOARTHRITIS [None]
  - DYSSTASIA [None]
  - MUSCULAR WEAKNESS [None]
  - SCOLIOSIS [None]
  - FRACTURE DISPLACEMENT [None]
  - IMMOBILE [None]
  - FEMUR FRACTURE [None]
  - STRESS FRACTURE [None]
